FAERS Safety Report 12740066 (Version 1)
Quarter: 2016Q3

REPORT INFORMATION
  Report Type: Report from Study
  Country: JP (occurrence: JP)
  Receive Date: 20160913
  Receipt Date: 20160913
  Transmission Date: 20161109
  Serious: Yes (Hospitalization, Other)
  Sender: FDA-Public Use
  Company Number: JP-GILEAD-2016-0232688

PATIENT
  Age: 61 Year
  Sex: Female

DRUGS (22)
  1. AMBRISENTAN [Suspect]
     Active Substance: AMBRISENTAN
     Indication: PULMONARY ARTERIAL HYPERTENSION
     Dosage: 2.5 MG, QD
     Route: 048
     Dates: start: 20121207, end: 20140903
  2. URALYT [Concomitant]
     Active Substance: POTASSIUM CITRATE\TRISODIUM CITRATE DIHYDRATE
     Indication: RENAL LITHIASIS PROPHYLAXIS
     Dosage: UNK
     Dates: start: 20130319
  3. ENDOXAN [Concomitant]
     Active Substance: CYCLOPHOSPHAMIDE
     Dosage: UNK
     Dates: start: 20130523, end: 20130523
  4. ENDOXAN [Concomitant]
     Active Substance: CYCLOPHOSPHAMIDE
     Indication: PULMONARY ARTERIAL HYPERTENSION
     Dosage: UNK
     Dates: start: 20130212, end: 20130212
  5. ENDOXAN [Concomitant]
     Active Substance: CYCLOPHOSPHAMIDE
     Dosage: UNK
     Dates: start: 20140109, end: 20140109
  6. BONALON [Concomitant]
     Active Substance: ALENDRONATE SODIUM
     Dosage: UNK
  7. ENDOXAN [Concomitant]
     Active Substance: CYCLOPHOSPHAMIDE
     Dosage: UNK
     Dates: start: 20130418, end: 20130418
  8. BAKTAR [Concomitant]
     Active Substance: SULFAMETHOXAZOLE\TRIMETHOPRIM
     Indication: INFECTION PROPHYLAXIS
     Dosage: UNK
  9. LIPITOR [Concomitant]
     Active Substance: ATORVASTATIN CALCIUM
     Dosage: UNK
     Dates: end: 20140903
  10. PREDONINE [Concomitant]
     Active Substance: PREDNISOLONE\PREDNISOLONE ACETATE\PREDNISOLONE SODIUM SUCCINATE
     Indication: PULMONARY ARTERIAL HYPERTENSION
     Dosage: UNK
     Dates: end: 20140813
  11. PREDONINE [Concomitant]
     Active Substance: PREDNISOLONE\PREDNISOLONE ACETATE\PREDNISOLONE SODIUM SUCCINATE
     Dosage: UNK
     Dates: start: 20140829
  12. ENDOXAN [Concomitant]
     Active Substance: CYCLOPHOSPHAMIDE
     Dosage: UNK
     Dates: start: 20130829, end: 20130829
  13. ENDOXAN [Concomitant]
     Active Substance: CYCLOPHOSPHAMIDE
     Dosage: UNK
     Dates: start: 20130620, end: 20130620
  14. ENDOXAN [Concomitant]
     Active Substance: CYCLOPHOSPHAMIDE
     Dosage: UNK
     Dates: start: 20140306, end: 20140306
  15. NEORAL [Interacting]
     Active Substance: CYCLOSPORINE
     Indication: PULMONARY ARTERIAL HYPERTENSION
     Dosage: UNK
     Route: 065
  16. TAKEPRON [Concomitant]
     Active Substance: LANSOPRAZOLE
     Dosage: UNK
  17. ENDOXAN [Concomitant]
     Active Substance: CYCLOPHOSPHAMIDE
     Dosage: UNK
     Dates: start: 20131107, end: 20131107
  18. ENDOXAN [Concomitant]
     Active Substance: CYCLOPHOSPHAMIDE
     Dosage: UNK
  19. IMURAN [Concomitant]
     Active Substance: AZATHIOPRINE
     Dosage: UNK
     Dates: start: 20140813, end: 20140903
  20. ADCIRCA [Concomitant]
     Active Substance: TADALAFIL
     Indication: PULMONARY ARTERIAL HYPERTENSION
     Dosage: UNK
  21. ENDOXAN [Concomitant]
     Active Substance: CYCLOPHOSPHAMIDE
     Dosage: UNK
     Dates: start: 20130314, end: 20130314
  22. RINDERON V [Concomitant]
     Active Substance: BETAMETHASONE VALERATE
     Indication: PULMONARY ARTERIAL HYPERTENSION
     Dosage: UNK
     Dates: start: 20140813, end: 20140824

REACTIONS (7)
  - Otitis media [Recovering/Resolving]
  - Otitis media [Recovered/Resolved]
  - Anaemia [Recovered/Resolved]
  - Off label use [Recovered/Resolved]
  - Septic shock [Recovered/Resolved]
  - Anaemia [Recovering/Resolving]
  - Drug interaction [Unknown]

NARRATIVE: CASE EVENT DATE: 20121207
